FAERS Safety Report 8115203-2 (Version None)
Quarter: 2012Q1

REPORT INFORMATION
  Report Type: 
  Country: None (occurrence: None)
  Receive Date: 20120206
  Receipt Date: 20120127
  Transmission Date: 20120608
  Serious: Yes (Hospitalization, Other)
  Sender: FDA-Public Use
  Company Number: US-US-EMD SERONO, INC.-7088223

PATIENT
  Sex: Female

DRUGS (9)
  1. CYMBALTA [Concomitant]
  2. LIPITOR [Concomitant]
  3. PAXIL [Concomitant]
  4. DYAZIDE [Concomitant]
  5. AMPYRA [Concomitant]
     Indication: GAIT DISTURBANCE
  6. REBIF [Suspect]
     Indication: MULTIPLE SCLEROSIS
     Route: 058
     Dates: start: 20100407
  7. SINGULAIR [Concomitant]
  8. PROTONIX [Concomitant]
  9. AGGRENOX [Concomitant]

REACTIONS (4)
  - HIP ARTHROPLASTY [None]
  - DEPRESSION [None]
  - ANAEMIA [None]
  - MULTIPLE SCLEROSIS RELAPSE [None]
